FAERS Safety Report 6606666-X (Version None)
Quarter: 2010Q1

REPORT INFORMATION
  Report Type: 
  Country: None (occurrence: None)
  Receive Date: 20100226
  Receipt Date: 20100215
  Transmission Date: 20100710
  Serious: Yes (Life-Threatening, Hospitalization)
  Sender: FDA-Public Use
  Company Number: KR-GENENTECH-296697

PATIENT
  Age: 18 Year
  Sex: Male

DRUGS (3)
  1. MABTHERA [Suspect]
     Indication: IDIOPATHIC THROMBOCYTOPENIC PURPURA
     Dosage: 375 MG/M2, 1/WEEK
     Route: 042
  2. MABTHERA [Suspect]
     Dosage: 50 MG/HR, UNK
     Route: 042
  3. ACETAMINOPHEN [Concomitant]
     Indication: DRUG USE FOR UNKNOWN INDICATION

REACTIONS (1)
  - TOXIC EPIDERMAL NECROLYSIS [None]
